FAERS Safety Report 20223575 (Version 3)
Quarter: 2022Q1

REPORT INFORMATION
  Report Type: Spontaneous
  Country: CA (occurrence: CA)
  Receive Date: 20211223
  Receipt Date: 20220106
  Transmission Date: 20220424
  Serious: Yes (Other)
  Sender: FDA-Public Use
  Company Number: CA-ABBVIE-21K-028-4210389-00

PATIENT
  Age: 40 Year
  Sex: Female

DRUGS (13)
  1. HUMIRA [Suspect]
     Active Substance: ADALIMUMAB
     Indication: Product used for unknown indication
     Route: 058
     Dates: start: 202001, end: 202004
  2. HUMIRA [Suspect]
     Active Substance: ADALIMUMAB
     Route: 058
     Dates: start: 202004, end: 202007
  3. METHOTREXATE [Suspect]
     Active Substance: METHOTREXATE
     Indication: Arthritis
     Route: 058
     Dates: start: 2018, end: 202108
  4. INFLECTRA [Suspect]
     Active Substance: INFLIXIMAB-DYYB
     Indication: Behcet^s syndrome
     Route: 042
     Dates: start: 20210602, end: 2021
  5. INFLECTRA [Suspect]
     Active Substance: INFLIXIMAB-DYYB
     Dosage: 1 DOSAGE FORM, 5 MG/KG AT 0,2,6 WEEKS THEN EVERY 8 WEEKS
     Route: 042
     Dates: start: 2021, end: 20211103
  6. PREDNISONE [Suspect]
     Active Substance: PREDNISONE
     Indication: Product used for unknown indication
     Route: 048
  7. AZATHIOPRINE [Concomitant]
     Active Substance: AZATHIOPRINE
     Indication: Product used for unknown indication
     Dates: start: 202007
  8. AZATHIOPRINE [Concomitant]
     Active Substance: AZATHIOPRINE
     Dates: start: 202101, end: 2021
  9. AZATHIOPRINE [Concomitant]
     Active Substance: AZATHIOPRINE
     Dates: start: 202102
  10. BACTRIM [Concomitant]
     Active Substance: SULFAMETHOXAZOLE\TRIMETHOPRIM
     Indication: Product used for unknown indication
  11. PERINDOPRIL [Concomitant]
     Active Substance: PERINDOPRIL
     Indication: Product used for unknown indication
  12. NORVASC [Concomitant]
     Active Substance: AMLODIPINE BESYLATE
     Indication: Product used for unknown indication
  13. PLAQUENIL [Concomitant]
     Active Substance: HYDROXYCHLOROQUINE SULFATE
     Indication: Product used for unknown indication
     Dates: start: 201909

REACTIONS (25)
  - Sjogren^s syndrome [Unknown]
  - Myasthenia gravis [Unknown]
  - Giant cell arteritis [Unknown]
  - Vascular graft occlusion [Unknown]
  - Drug ineffective [Unknown]
  - Drug ineffective [Unknown]
  - Deafness [Unknown]
  - Diplopia [Not Recovered/Not Resolved]
  - Deep vein thrombosis [Unknown]
  - Cavernous sinus thrombosis [Unknown]
  - Drug ineffective [Unknown]
  - Headache [Not Recovered/Not Resolved]
  - Intraocular pressure increased [Unknown]
  - Scleritis [Unknown]
  - Aphthous ulcer [Recovering/Resolving]
  - Eye symptom [Unknown]
  - Spondylitis [Unknown]
  - Connective tissue disorder [Unknown]
  - Vasculitis [Unknown]
  - Optic neuritis [Unknown]
  - Ear discomfort [Unknown]
  - Ear discomfort [Unknown]
  - Groin pain [Unknown]
  - Pain in extremity [Unknown]
  - Eye pain [Unknown]

NARRATIVE: CASE EVENT DATE: 20200201
